FAERS Safety Report 6124348-8 (Version None)
Quarter: 2009Q1

REPORT INFORMATION
  Report Type: 
  Country: None (occurrence: None)
  Receive Date: 20090317
  Receipt Date: 20090303
  Transmission Date: 20090719
  Serious: Yes (Hospitalization)
  Sender: FDA-Public Use
  Company Number: 205863

PATIENT
  Age: 80 Year
  Sex: Female

DRUGS (3)
  1. LIDOCAINE HYDROCHLORIDE [Suspect]
     Indication: LOCAL ANAESTHESIA
     Dosage: ONCE, INTRAARTICULAR
     Route: 014
  2. METHYLPREDNISOLONE ACETATE [Suspect]
     Indication: ANALGESIA
     Dosage: ONCE, INTRA-ARTICULAR
     Route: 014
     Dates: start: 20090116, end: 20090116
  3. METHYLPREDNISOLONE ACETATE [Suspect]
     Indication: JOINT INJECTION
     Dosage: ONCE, INTRA-ARTICULAR
     Route: 014
     Dates: start: 20090116, end: 20090116

REACTIONS (6)
  - CYST [None]
  - INJECTION SITE CELLULITIS [None]
  - INJECTION SITE INFECTION [None]
  - OSTEOARTHRITIS [None]
  - OSTEOMYELITIS [None]
  - WRONG TECHNIQUE IN DRUG USAGE PROCESS [None]
